FAERS Safety Report 24147837 (Version 1)
Quarter: 2024Q3

REPORT INFORMATION
  Report Type: Spontaneous
  Country: US (occurrence: None)
  Receive Date: 20240727
  Receipt Date: 20240727
  Transmission Date: 20241016
  Serious: Yes (Other)
  Sender: Public
  Company Number: None

PATIENT
  Age: 49 Year
  Sex: Male
  Weight: 85.5 kg

DRUGS (1)
  1. PRAMIPEXOLE [Suspect]
     Active Substance: PRAMIPEXOLE\PRAMIPEXOLE DIHYDROCHLORIDE
     Indication: Akathisia
     Dosage: 1 TABLET 3 TIMES A DAY ORAL
     Route: 048
     Dates: start: 20240711, end: 20240720

REACTIONS (6)
  - Migraine [None]
  - Vision blurred [None]
  - Decreased appetite [None]
  - Malaise [None]
  - Acne [None]
  - Therapy cessation [None]

NARRATIVE: CASE EVENT DATE: 20240720
